FAERS Safety Report 10310112 (Version 3)
Quarter: 2014Q3

REPORT INFORMATION
  Report Type: Other
  Country: GB (occurrence: GB)
  Receive Date: 20140717
  Receipt Date: 20140826
  Transmission Date: 20150326
  Serious: Yes (Death, Hospitalization)
  Sender: FDA-Public Use
  Company Number: GB-LUPIN PHARMACEUTICALS INC.-2012-00172

PATIENT
  Age: 36 Year
  Sex: Male

DRUGS (8)
  1. ARIPIPRAZOLE [Suspect]
     Active Substance: ARIPIPRAZOLE
     Indication: SCHIZOPHRENIA
     Route: 048
  2. VALPROIC ACID (SODIUM VALPROATE) [Concomitant]
     Indication: PRODUCT USED FOR UNKNOWN INDICATION
     Route: 065
  3. ZAPONEX [Suspect]
     Active Substance: CLOZAPINE
     Indication: SCHIZOPHRENIA
     Route: 048
     Dates: end: 20120109
  4. OMEPRAZOLE. [Concomitant]
     Active Substance: OMEPRAZOLE
     Indication: PRODUCT USED FOR UNKNOWN INDICATION
     Route: 042
     Dates: end: 20120124
  5. WARFARIN [Concomitant]
     Active Substance: WARFARIN
     Indication: PRODUCT USED FOR UNKNOWN INDICATION
     Route: 065
     Dates: end: 20140108
  6. CLONAZEPAM. [Concomitant]
     Active Substance: CLONAZEPAM
     Indication: PRODUCT USED FOR UNKNOWN INDICATION
     Route: 065
     Dates: end: 20120108
  7. FOLIC ACID. [Concomitant]
     Active Substance: FOLIC ACID
     Indication: PRODUCT USED FOR UNKNOWN INDICATION
     Route: 065
  8. SIMVASTATIN. [Suspect]
     Active Substance: SIMVASTATIN
     Indication: PRODUCT USED FOR UNKNOWN INDICATION
     Route: 048

REACTIONS (23)
  - Arteriosclerosis [Not Recovered/Not Resolved]
  - Hepatomegaly [Not Recovered/Not Resolved]
  - Otitis externa [Not Recovered/Not Resolved]
  - Renal disorder [Not Recovered/Not Resolved]
  - Circulatory collapse [Unknown]
  - Anaemia [Not Recovered/Not Resolved]
  - Hyperosmolar state [Unknown]
  - Cerebral arteriosclerosis [Unknown]
  - Neuroleptic malignant syndrome [Fatal]
  - Sepsis [Fatal]
  - Haemorrhage [Not Recovered/Not Resolved]
  - Pulmonary oedema [Not Recovered/Not Resolved]
  - Splenomegaly [Not Recovered/Not Resolved]
  - Large intestine perforation [Fatal]
  - Diabetes mellitus [Unknown]
  - Peritonitis [Fatal]
  - Renal impairment [Unknown]
  - Blood creatine phosphokinase increased [Unknown]
  - Multi-organ failure [Not Recovered/Not Resolved]
  - Obesity [Unknown]
  - Hepatic function abnormal [Unknown]
  - Liver injury [Not Recovered/Not Resolved]
  - Generalised oedema [Not Recovered/Not Resolved]

NARRATIVE: CASE EVENT DATE: 20120109
